FAERS Safety Report 5327448-5 (Version None)
Quarter: 2007Q1

REPORT INFORMATION
  Report Type: 
  Country: None (occurrence: None)
  Receive Date: 20070222
  Receipt Date: 20061103
  Transmission Date: 20070707
  Serious: Yes (Hospitalization)
  Sender: FDA-Public Use
  Company Number: 0610020

PATIENT
  Age: 54 Year
  Sex: Female

DRUGS (1)
  1. ORFADIN [Suspect]
     Indication: ALKAPTONURIA
     Dosage: 2 MILLIGRAM A DAY ORAL
     Route: 048
     Dates: start: 20050926, end: 20060824

REACTIONS (2)
  - ALANINE AMINOTRANSFERASE INCREASED [None]
  - ASPARTATE AMINOTRANSFERASE INCREASED [None]
